FAERS Safety Report 18943763 (Version 5)
Quarter: 2021Q1

REPORT INFORMATION
  Report Type: Spontaneous
  Country: JP (occurrence: JP)
  Receive Date: 20210226
  Receipt Date: 20210316
  Transmission Date: 20210420
  Serious: Yes (Other)
  Sender: FDA-Public Use
  Company Number: JP-TEVA-2021-JP-000827J

PATIENT
  Age: 79 Year
  Sex: Male

DRUGS (1)
  1. LANSOPRAZOLE OD TABLET 30MG ^TAKEDA TEVA^ [Suspect]
     Active Substance: LANSOPRAZOLE
     Indication: PRODUCT USED FOR UNKNOWN INDICATION
     Dosage: DOSAGE IS UNKNOWN
     Route: 048
     Dates: start: 20210119

REACTIONS (1)
  - Delirium [Unknown]
